FAERS Safety Report 9164778 (Version 2)
Quarter: 2013Q2

REPORT INFORMATION
  Report Type: Spontaneous
  Country: IT (occurrence: IT)
  Receive Date: 20130315
  Receipt Date: 20130418
  Transmission Date: 20140414
  Serious: Yes (Hospitalization)
  Sender: FDA-Public Use
  Company Number: IT-PFIZER INC-2013085489

PATIENT
  Age: 69 Year
  Sex: Male

DRUGS (2)
  1. METHOTREXATE [Suspect]
     Indication: RHEUMATOID ARTHRITIS
     Dosage: 1 DOSAGE UNIT, DAILY
     Route: 048
     Dates: start: 20100101, end: 20130205
  2. MEDROL [Suspect]
     Indication: RHEUMATOID ARTHRITIS
     Dosage: 1 DOSAGE UNIT, DAILY
     Route: 048
     Dates: start: 20130101, end: 20130205

REACTIONS (1)
  - Pancytopenia [Recovered/Resolved]
